FAERS Safety Report 5943928-3 (Version None)
Quarter: 2008Q4

REPORT INFORMATION
  Report Type: 
  Country: None (occurrence: None)
  Receive Date: 20081106
  Receipt Date: 20081030
  Transmission Date: 20090506
  Serious: Yes (Hospitalization, Other)
  Sender: FDA-Public Use
  Company Number: US-ELI_LILLY_AND_COMPANY-US200806005915

PATIENT
  Sex: Male

DRUGS (8)
  1. BYETTA [Suspect]
     Indication: TYPE 2 DIABETES MELLITUS
     Dosage: 5 UG, 2/D
     Route: 058
     Dates: start: 20071001, end: 20071201
  2. BYETTA [Suspect]
     Dosage: 10 UG, 2/D
     Route: 058
     Dates: start: 20071201
  3. GLUCOPHAGE [Concomitant]
     Indication: TYPE 2 DIABETES MELLITUS
     Dosage: 1000 MG, 2/D
     Route: 048
     Dates: start: 20030101
  4. AMARYL [Concomitant]
     Indication: TYPE 2 DIABETES MELLITUS
     Dosage: 2 MG, 2/D
     Route: 048
     Dates: start: 20030101, end: 20080601
  5. AMARYL [Concomitant]
     Dosage: 2 MG, DAILY (1/D)
     Route: 048
     Dates: start: 20080601
  6. ALLOPURINOL [Concomitant]
     Dosage: 300 MG, DAILY (1/D)
     Route: 048
  7. LESCOL [Concomitant]
     Dosage: 80 MG, DAILY (1/D)
     Route: 048
  8. VALSARTAN [Concomitant]
     Dosage: 80 MG, DAILY (1/D)
     Route: 048

REACTIONS (5)
  - BLOOD GLUCOSE ABNORMAL [None]
  - FEELING ABNORMAL [None]
  - LIMB TRAUMATIC AMPUTATION [None]
  - PILOERECTION [None]
  - SYNCOPE [None]
